FAERS Safety Report 6891014-0 (Version None)
Quarter: 2010Q3

REPORT INFORMATION
  Report Type: 
  Country: None (occurrence: None)
  Receive Date: 20100731
  Receipt Date: 20090512
  Transmission Date: 20110219
  Serious: No
  Sender: FDA-Public Use
  Company Number: US-PFIZER INC-2009201481

PATIENT
  Sex: Male
  Weight: 97.975 kg

DRUGS (1)
  1. LIPITOR [Suspect]
     Indication: BLOOD CHOLESTEROL INCREASED
     Dosage: 20 MG, UNK
     Dates: start: 20090401

REACTIONS (3)
  - LIP SWELLING [None]
  - PRURITUS GENERALISED [None]
  - WEIGHT INCREASED [None]
